FAERS Safety Report 14763651 (Version 1)
Quarter: 2018Q2

REPORT INFORMATION
  Report Type: Spontaneous
  Country: CA (occurrence: CA)
  Receive Date: 20180416
  Receipt Date: 20180416
  Transmission Date: 20180711
  Serious: Yes (Other)
  Sender: FDA-Public Use
  Company Number: CA-PFIZER INC-2018145859

PATIENT
  Sex: Female

DRUGS (2)
  1. GABAPENTIN. [Suspect]
     Active Substance: GABAPENTIN
     Dosage: 250 MG, 4X/DAY
     Dates: end: 2018
  2. GABAPENTIN. [Suspect]
     Active Substance: GABAPENTIN
     Indication: SPINAL CORD INJURY
     Dosage: 100 MG, 4X/DAY
     Dates: start: 2002

REACTIONS (4)
  - Blindness [Not Recovered/Not Resolved]
  - Product use in unapproved indication [Unknown]
  - Diarrhoea [Unknown]
  - Somnolence [Unknown]

NARRATIVE: CASE EVENT DATE: 2002
